FAERS Safety Report 8576270-5 (Version None)
Quarter: 2012Q3

REPORT INFORMATION
  Report Type: 
  Country: None (occurrence: None)
  Receive Date: 20120807
  Receipt Date: 20120806
  Transmission Date: 20120928
  Serious: Yes (Death, Other)
  Sender: FDA-Public Use
  Company Number: CM-ABBOTT-12P-027-0964994-00

PATIENT
  Age: 22 Year
  Sex: Female

DRUGS (1)
  1. VALPROATE SODIUM [Suspect]
     Indication: EPILEPSY
     Dosage: 50 MG DAILY

REACTIONS (5)
  - VERTIGO [None]
  - GRAND MAL CONVULSION [None]
  - FATIGUE [None]
  - EPILEPSY [None]
  - HEADACHE [None]
